FAERS Safety Report 8225717-2 (Version None)
Quarter: 2012Q1

REPORT INFORMATION
  Report Type: 
  Country: None (occurrence: None)
  Receive Date: 20120321
  Receipt Date: 20120314
  Transmission Date: 20120608
  Serious: Yes (Other)
  Sender: FDA-Public Use
  Company Number: US-JNJFOC-20120307083

PATIENT
  Age: 56 Year
  Sex: Female

DRUGS (1)
  1. SIMPONI [Suspect]
     Indication: AUTOIMMUNE DISORDER
     Route: 058
     Dates: start: 20120303

REACTIONS (3)
  - DEPRESSION [None]
  - MOOD SWINGS [None]
  - OFF LABEL USE [None]
